FAERS Safety Report 8537930-5 (Version None)
Quarter: 2012Q3

REPORT INFORMATION
  Report Type: 
  Country: None (occurrence: None)
  Receive Date: 20120725
  Receipt Date: 20120720
  Transmission Date: 20120928
  Serious: Yes (Hospitalization)
  Sender: FDA-Public Use
  Company Number: CA-GLAXOSMITHKLINE-B0816385A

PATIENT
  Sex: Female

DRUGS (8)
  1. PANTOPRAZOLE SODIUM [Concomitant]
  2. OMACOR [Suspect]
     Indication: PRODUCT USED FOR UNKNOWN INDICATION
     Route: 048
     Dates: start: 20040421, end: 20051018
  3. RAMIPRIL [Concomitant]
  4. TERAZOSIN HYDROCHLORIDE [Concomitant]
  5. ASPIRIN [Suspect]
     Indication: PROPHYLAXIS
     Dosage: 80MG PER DAY
     Route: 065
     Dates: end: 20051018
  6. LANTUS [Suspect]
     Indication: DIABETES MELLITUS
     Route: 058
     Dates: start: 20050421
  7. FUROSEMIDE [Concomitant]
  8. DILTIAZEM [Concomitant]
     Dates: start: 19980101

REACTIONS (1)
  - RECTAL HAEMORRHAGE [None]
